FAERS Safety Report 10843016 (Version 3)
Quarter: 2015Q3

REPORT INFORMATION
  Report Type: Spontaneous
  Country: UY (occurrence: UY)
  Receive Date: 20150220
  Receipt Date: 20150919
  Transmission Date: 20151125
  Serious: Yes (Hospitalization)
  Sender: FDA-Public Use
  Company Number: UY-AMGEN-URYSP2015015813

PATIENT
  Age: 68 Year
  Sex: Female

DRUGS (22)
  1. TRASTUZUMAB [Concomitant]
     Active Substance: TRASTUZUMAB
     Dosage: 280 MG, 1 IN 21 D
     Route: 042
     Dates: start: 20141001
  2. PERTUZUMAB [Concomitant]
     Active Substance: PERTUZUMAB
     Dosage: 420 MG,1 IN 21 D
     Route: 042
     Dates: start: 20140930
  3. ENALAPRIL [Concomitant]
     Active Substance: ENALAPRIL
     Dosage: 40 MG, UNK
     Dates: start: 20140930
  4. INSULIN [Concomitant]
     Active Substance: INSULIN NOS
     Dosage: 4 IU, UNK
     Dates: start: 20140910, end: 20140910
  5. OMEPRAZOLE. [Concomitant]
     Active Substance: OMEPRAZOLE
     Indication: GASTRITIS
     Dosage: 40 MG, UNK
     Dates: start: 20140818
  6. ENALAPRIL [Concomitant]
     Active Substance: ENALAPRIL
     Indication: HYPERTENSION
     Dosage: 40 MG, UNK
     Dates: start: 20140704
  7. INSULIN [Concomitant]
     Active Substance: INSULIN NOS
     Dosage: 10 IU, UNK
     Dates: start: 20140909, end: 20140909
  8. FILGRASTIM [Suspect]
     Active Substance: FILGRASTIM
     Indication: PRODUCT USED FOR UNKNOWN INDICATION
     Dosage: 300 MCG, UNK
     Route: 058
     Dates: start: 20150124, end: 20150127
  9. DEXAMETHASONE. [Concomitant]
     Active Substance: DEXAMETHASONE
     Dosage: 8 MG, UNK
     Dates: start: 20140811, end: 20140905
  10. ONDANSETRON [Concomitant]
     Active Substance: ONDANSETRON
     Dosage: 8 MG, UNK
     Dates: start: 20140910, end: 20140910
  11. METAMIZOLE [Concomitant]
     Active Substance: METAMIZOLE
     Dosage: 1 G, UNK
     Dates: start: 20141002, end: 20141002
  12. CHLORPHENIRAMINE                   /00072501/ [Concomitant]
     Active Substance: CHLORPHENIRAMINE
     Dosage: 10 MG, UNK
     Dates: start: 20141002, end: 20141002
  13. METAMIZOLE [Concomitant]
     Active Substance: METAMIZOLE
     Dosage: 1 G, UNK
     Dates: start: 20140909, end: 20140910
  14. DEXAMETHASONE. [Concomitant]
     Active Substance: DEXAMETHASONE
     Dosage: 16 MG, UNK
     Dates: start: 20141001, end: 20141003
  15. PERTUZUMAB [Concomitant]
     Active Substance: PERTUZUMAB
     Indication: HER-2 POSITIVE BREAST CANCER
     Dosage: LOADING DOSE (840 MG, DAY OF CYCLE 1 AS PER PROTOCOL)
     Route: 042
     Dates: start: 20140909, end: 20140909
  16. TRASTUZUMAB [Concomitant]
     Active Substance: TRASTUZUMAB
     Indication: HER-2 POSITIVE BREAST CANCER
     Dosage: 8 MG/KG, DAY OF CYCLE 1 AS PER PROTOCOL, UNK
     Route: 042
     Dates: start: 20140910
  17. DOCETAXEL. [Concomitant]
     Active Substance: DOCETAXEL
     Indication: HER-2 POSITIVE BREAST CANCER
     Dosage: 100 MG, 1 IN 21 D
     Route: 042
     Dates: start: 20140910
  18. DEXAMETHASONE. [Concomitant]
     Active Substance: DEXAMETHASONE
     Dosage: 16 MG, UNK
     Dates: start: 20140909, end: 20140911
  19. DEXAMETHASONE. [Concomitant]
     Active Substance: DEXAMETHASONE
     Dosage: 16 MG, UNK
     Dates: start: 20141022, end: 20141024
  20. OMEPRAZOLE. [Concomitant]
     Active Substance: OMEPRAZOLE
     Dosage: 40 MG, UNK
     Dates: start: 201409
  21. ONDANSETRON [Concomitant]
     Active Substance: ONDANSETRON
     Dosage: 8 MG, UNK
     Dates: start: 20141002, end: 20141002
  22. CHLORPHENIRAMINE                   /00072501/ [Concomitant]
     Active Substance: CHLORPHENIRAMINE
     Dosage: 10 MG, UNK
     Dates: start: 20140909, end: 20140910

REACTIONS (1)
  - Cellulitis [Recovered/Resolved]

NARRATIVE: CASE EVENT DATE: 20150201
